FAERS Safety Report 23178965 (Version 1)
Quarter: 2023Q4

REPORT INFORMATION
  Report Type: Spontaneous
  Country: ES (occurrence: ES)
  Receive Date: 20231113
  Receipt Date: 20231113
  Transmission Date: 20240110
  Serious: Yes (Death, Hospitalization, Other)
  Sender: FDA-Public Use
  Company Number: ES-PFIZER INC-202300359070

PATIENT
  Age: 79 Year
  Sex: Male

DRUGS (5)
  1. VYNDAQEL [Suspect]
     Active Substance: TAFAMIDIS MEGLUMINE
     Indication: Acquired ATTR amyloidosis
     Dosage: 61 MG, 1X/DAY
     Route: 048
  2. FUROSEMIDE [Concomitant]
     Active Substance: FUROSEMIDE
  3. SPIRONOLACTONE [Concomitant]
     Active Substance: SPIRONOLACTONE
  4. RIVAROXABAN [Concomitant]
     Active Substance: RIVAROXABAN
  5. DAPAGLIFLOZIN [Concomitant]
     Active Substance: DAPAGLIFLOZIN

REACTIONS (5)
  - Endocarditis staphylococcal [Fatal]
  - Staphylococcal bacteraemia [Fatal]
  - Encephalitis viral [Recovering/Resolving]
  - Cardiac failure [Not Recovered/Not Resolved]
  - Catheter site phlebitis [Unknown]
